FAERS Safety Report 9691319 (Version 1)
Quarter: 2013Q4

REPORT INFORMATION
  Report Type: Spontaneous
  Country: US (occurrence: US)
  Receive Date: 20131115
  Receipt Date: 20131115
  Transmission Date: 20140711
  Serious: Yes (Other)
  Sender: FDA-Public Use
  Company Number: US-JHP PHARMACEUTICALS, LLC-JHP201300662

PATIENT
  Sex: Female

DRUGS (1)
  1. APLISOL DIAGNOSTIC ANTIGEN [Suspect]
     Indication: TUBERCULIN TEST
     Dosage: 0.1 ML, SINGLE
     Route: 023
     Dates: start: 20131014, end: 20131014

REACTIONS (5)
  - Phlebitis [Recovering/Resolving]
  - Contusion [Not Recovered/Not Resolved]
  - Pain in extremity [Not Recovered/Not Resolved]
  - Pruritus [Not Recovered/Not Resolved]
  - Erythema [Not Recovered/Not Resolved]
